FAERS Safety Report 9981391 (Version 2)
Quarter: 2014Q1

REPORT INFORMATION
  Report Type: Spontaneous
  Country: IL (occurrence: IL)
  Receive Date: 20140307
  Receipt Date: 20140310
  Transmission Date: 20141002
  Serious: Yes (Hospitalization)
  Sender: FDA-Public Use
  Company Number: IL-JNJFOC-20140301157

PATIENT
  Age: 49 Year
  Sex: Male

DRUGS (2)
  1. XARELTO [Suspect]
     Indication: ATRIAL FLUTTER
     Route: 065
     Dates: start: 201402
  2. SOTALOL [Concomitant]
     Indication: ARRHYTHMIA
     Route: 065
     Dates: start: 201402

REACTIONS (3)
  - Cerebrovascular accident [Recovering/Resolving]
  - Hypoaesthesia [Recovering/Resolving]
  - Off label use [Not Recovered/Not Resolved]
